FAERS Safety Report 5255822-4 (Version None)
Quarter: 2007Q1

REPORT INFORMATION
  Report Type: 
  Country: None (occurrence: None)
  Receive Date: 20070301
  Receipt Date: 20070213
  Transmission Date: 20070707
  Serious: Yes (Death, Other)
  Sender: FDA-Public Use
  Company Number: 2007BI003675

PATIENT
  Age: 58 Year
  Sex: Female

DRUGS (4)
  1. ZEVALIN (IRBITUMOMAS TIUXETAN) [Suspect]
     Indication: NON-HODGKIN'S LYMPHOMA
     Dosage: 1184 MBQ; 1X; IV
     Route: 042
     Dates: start: 20060424, end: 20060424
  2. RITUXIMAB [Concomitant]
  3. ACETAMINOPHEN [Concomitant]
  4. FLEBOCORTID [Concomitant]

REACTIONS (2)
  - LEUKOPENIA [None]
  - THROMBOCYTOPENIA [None]
